FAERS Safety Report 4607902-1 (Version None)
Quarter: 2005Q1

REPORT INFORMATION
  Report Type: 
  Country: None (occurrence: None)
  Receive Date: 20050310
  Receipt Date: 20050228
  Transmission Date: 20050727
  Serious: Yes (Other)
  Sender: FDA-Public Use
  Company Number: 2005039895

PATIENT
  Sex: 0

DRUGS (1)
  1. SULPERAZON            (SULBACTAM, CEFOPERAZONE) [Suspect]
     Indication: POSTOPERATIVE CARE
     Dosage: INTRAVENOUS
     Route: 042
     Dates: start: 20050225, end: 20050201

REACTIONS (1)
  - ANAPHYLACTIC SHOCK [None]
